FAERS Safety Report 5017690-5 (Version None)
Quarter: 2006Q2

REPORT INFORMATION
  Report Type: 
  Country: None (occurrence: None)
  Receive Date: 20060525
  Receipt Date: 20060511
  Transmission Date: 20061013
  Serious: Yes (Death)
  Sender: FDA-Public Use
  Company Number: 2006S1003423

PATIENT
  Age: 41 Year
  Sex: Male
  Weight: 124.7392 kg

DRUGS (22)
  1. FENTANYL TRANSDERMAL SYSTEM [Suspect]
     Indication: FIBROMYALGIA
     Dosage: 50 UG/HR;Q3D;TRANS
     Route: 062
     Dates: start: 20051227, end: 20060119
  2. FENTANYL TRANSDERMAL SYSTEM [Suspect]
     Indication: PAIN
     Dosage: 50 UG/HR;Q3D;TRANS
     Route: 062
     Dates: start: 20051227, end: 20060119
  3. FENTANYL TRANSDERMAL SYSTEM [Suspect]
     Indication: FIBROMYALGIA
     Dosage: 75 UG/HR;Q3D;TRANS
     Route: 062
     Dates: start: 20060119, end: 20060120
  4. FENTANYL TRANSDERMAL SYSTEM [Suspect]
     Indication: PAIN
     Dosage: 75 UG/HR;Q3D;TRANS
     Route: 062
     Dates: start: 20060119, end: 20060120
  5. GEMFIBROZIL [Concomitant]
  6. FLUOXETINE [Concomitant]
  7. CLONAZEPAM [Concomitant]
  8. TRAZODONE HCL [Concomitant]
  9. FUROSEMIDE [Concomitant]
  10. TRAMADOL HCL [Concomitant]
  11. CARISOPRODOL [Suspect]
     Indication: FIBROMYALGIA
     Dosage: 250 MG;Q6H;ORAL
     Route: 048
     Dates: start: 20050501, end: 20060101
  12. CARISOPRODOL [Suspect]
     Indication: PAIN
     Dosage: 250 MG;Q6H;ORAL
     Route: 048
     Dates: start: 20050501, end: 20060101
  13. OXYCODONE/ACETAMINOPHEN 5MG/500MG (MALLINCRODT) (5 MG) [Suspect]
     Indication: FIBROMYALGIA
     Dosage: 5 MG;Q6H; ORAL
     Route: 048
     Dates: start: 20050901, end: 20060101
  14. OXYCODONE/ACETAMINOPHEN 5MG/500MG (MALLINCRODT) (5 MG) [Suspect]
     Indication: PAIN
     Dosage: 5 MG;Q6H; ORAL
     Route: 048
     Dates: start: 20050901, end: 20060101
  15. TEMAZEPAM [Concomitant]
  16. LISINOPRIL [Concomitant]
  17. IPRATROPIUM BROMIDE/SALBUTAMOL SULFATE [Concomitant]
  18. DULOXETINE [Concomitant]
  19. FENOFIBRATE [Concomitant]
  20. OXYCODONE HCL [Concomitant]
  21. ATORVASTATIN CALCIUM [Concomitant]
  22. HYDROCHLOROTHIAZIDE [Concomitant]

REACTIONS (20)
  - CARDIAC HYPERTROPHY [None]
  - CORONARY ARTERY STENOSIS [None]
  - DRUG EFFECT DECREASED [None]
  - DRUG TOXICITY [None]
  - DYSPNOEA [None]
  - FIBROSIS [None]
  - HEPATIC STEATOSIS [None]
  - HYPERSOMNIA [None]
  - HYPERTROPHIC CARDIOMYOPATHY [None]
  - HYPOVENTILATION [None]
  - OEDEMA [None]
  - PHARMACEUTICAL PRODUCT COMPLAINT [None]
  - PORTAL TRIADITIS [None]
  - PULMONARY CONGESTION [None]
  - PULMONARY OEDEMA [None]
  - PULSE ABSENT [None]
  - RESPIRATORY DISTRESS [None]
  - SUDDEN DEATH [None]
  - URINARY RETENTION [None]
  - WRONG TECHNIQUE IN DRUG USAGE PROCESS [None]
